FAERS Safety Report 16462683 (Version 1)
Quarter: 2019Q2

REPORT INFORMATION
  Report Type: Spontaneous
  Country: FR (occurrence: FR)
  Receive Date: 20190621
  Receipt Date: 20190621
  Transmission Date: 20190711
  Serious: Yes (Hospitalization)
  Sender: FDA-Public Use
  Company Number: FR-ACCORD-134075

PATIENT
  Age: 83 Year
  Sex: Female
  Weight: 62 kg

DRUGS (9)
  1. GLUCOR [Concomitant]
     Active Substance: ACARBOSE
  2. SERTRALINE [Suspect]
     Active Substance: SERTRALINE HYDROCHLORIDE
     Indication: DEPRESSION
     Route: 048
     Dates: start: 20190418
  3. PREGABALIN. [Concomitant]
     Active Substance: PREGABALIN
  4. SPIRONOLACTONE. [Concomitant]
     Active Substance: SPIRONOLACTONE
  5. LERCAN [Suspect]
     Active Substance: LERCANIDIPINE
     Indication: HYPERTENSION
     Dosage: SCORED FILM-COATED TABLET
     Route: 048
     Dates: end: 20190424
  6. GALVUS [Concomitant]
     Active Substance: VILDAGLIPTIN
  7. MODOPAR [Concomitant]
     Active Substance: BENSERAZIDE HYDROCHLORIDE\LEVODOPA
  8. INEXIUM [Concomitant]
     Active Substance: ESOMEPRAZOLE
  9. PLAVIX [Concomitant]
     Active Substance: CLOPIDOGREL BISULFATE

REACTIONS (2)
  - Chest pain [Recovered/Resolved]
  - Extrasystoles [Recovering/Resolving]

NARRATIVE: CASE EVENT DATE: 20190424
